FAERS Safety Report 8188833-X (Version None)
Quarter: 2012Q1

REPORT INFORMATION
  Report Type: 
  Country: None (occurrence: None)
  Receive Date: 20120306
  Receipt Date: 20120228
  Transmission Date: 20120608
  Serious: Yes (Hospitalization, Other)
  Sender: FDA-Public Use
  Company Number: US-CELGENEUS-163-21880-12030234

PATIENT
  Sex: Male

DRUGS (2)
  1. REVLIMID [Suspect]
     Indication: MULTIPLE MYELOMA
     Dosage: 25 MILLIGRAM
     Route: 048
     Dates: start: 20100309
  2. ZITHROMAX [Concomitant]
     Indication: ANTI-INFECTIVE THERAPY
     Dosage: 250 MILLIGRAM
     Route: 065
     Dates: start: 20111128, end: 20111202

REACTIONS (1)
  - GALLBLADDER DISORDER [None]
